FAERS Safety Report 7948181-7 (Version None)
Quarter: 2011Q4

REPORT INFORMATION
  Report Type: 
  Country: None (occurrence: None)
  Receive Date: 20111125
  Receipt Date: 20111122
  Transmission Date: 20120403
  Serious: Yes (Hospitalization)
  Sender: FDA-Public Use
  Company Number: 1000025717

PATIENT
  Age: 54 Year
  Sex: Male

DRUGS (2)
  1. MULTIPLE MEDICATIONS NOS (MULTIPLE MEDICATIONS NOS) (MULTIPLE MEDICATI [Concomitant]
  2. BYSTOLIC [Suspect]

REACTIONS (2)
  - SHOCK [None]
  - OVERDOSE [None]
